FAERS Safety Report 7216352-3 (Version None)
Quarter: 2011Q1

REPORT INFORMATION
  Report Type: 
  Country: None (occurrence: None)
  Receive Date: 20110107
  Receipt Date: 20110106
  Transmission Date: 20110831
  Serious: Yes (Hospitalization, Other)
  Sender: FDA-Public Use
  Company Number: BR-ABBOTT-10P-020-0681975-00

PATIENT
  Sex: Female
  Weight: 53 kg

DRUGS (8)
  1. FOLIC ACID [Concomitant]
     Indication: ANKYLOSING SPONDYLITIS
     Route: 048
  2. METHOTREXATE [Concomitant]
     Indication: ANKYLOSING SPONDYLITIS
     Dosage: 1ML EVERY WEEK
     Route: 030
  3. COMBINED FORMULA [Concomitant]
     Indication: PAIN
     Dosage: COMBINED FORMULA - CODEINE60MG/ PARACETAMOL 500MG
     Route: 048
  4. MELOXICAM [Concomitant]
     Indication: PAIN
     Route: 048
  5. DIAZEPAM [Concomitant]
     Indication: INSOMNIA
     Route: 048
  6. NEOZINE [Concomitant]
     Indication: INSOMNIA
     Route: 048
  7. HUMIRA [Suspect]
     Indication: ANKYLOSING SPONDYLITIS
     Route: 058
     Dates: start: 20091101, end: 20100924
  8. AMITRIPTYLINE [Concomitant]
     Indication: INSOMNIA
     Route: 048

REACTIONS (15)
  - NIGHT SWEATS [None]
  - SALPINGITIS [None]
  - UTERINE INFECTION [None]
  - LEIOMYOMA [None]
  - OVARIAN INFECTION [None]
  - VOMITING [None]
  - DECREASED APPETITE [None]
  - PAIN [None]
  - HAEMORRHAGIC CYST [None]
  - BONE PAIN [None]
  - PYREXIA [None]
  - URINARY TRACT INFECTION [None]
  - ARTHRALGIA [None]
  - TUBERCULOSIS [None]
  - WEIGHT DECREASED [None]
